FAERS Safety Report 8073084-X (Version None)
Quarter: 2012Q1

REPORT INFORMATION
  Report Type: 
  Country: None (occurrence: None)
  Receive Date: 20120120
  Receipt Date: 20120116
  Transmission Date: 20120608
  Serious: Yes (Hospitalization)
  Sender: FDA-Public Use
  Company Number: IMP_05712_2012

PATIENT
  Age: 55 Year
  Sex: Female
  Weight: 70 kg

DRUGS (5)
  1. ENOXAPARIN [Concomitant]
  2. VENLAFAXINE [Concomitant]
  3. ESOMEPRAZOLE SODIUM [Concomitant]
  4. METAMIZOLE [Concomitant]
  5. GEMFIBROZIL [Suspect]
     Indication: HYPERTRIGLYCERIDAEMIA
     Dosage: 600 MG

REACTIONS (4)
  - HEPATITIS ACUTE [None]
  - CHOLELITHIASIS [None]
  - HEPATOTOXICITY [None]
  - HEPATITIS TOXIC [None]
